FAERS Safety Report 12126644 (Version 3)
Quarter: 2016Q2

REPORT INFORMATION
  Report Type: Spontaneous
  Country: US (occurrence: US)
  Receive Date: 20160229
  Receipt Date: 20160415
  Transmission Date: 20160815
  Serious: Yes (Other)
  Sender: FDA-Public Use
  Company Number: US-GLAXOSMITHKLINE-US2016026425

PATIENT
  Age: 81 Year
  Sex: Male

DRUGS (11)
  1. FUROSEMIDE. [Concomitant]
     Active Substance: FUROSEMIDE
  2. BALSALAZIDE [Concomitant]
     Active Substance: BALSALAZIDE
  3. LEVOTHYROXINE. [Concomitant]
     Active Substance: LEVOTHYROXINE
  4. SOTALOL. [Concomitant]
     Active Substance: SOTALOL
  5. ISOSORBIDE. [Concomitant]
     Active Substance: ISOSORBIDE
  6. IMBRUVICA [Concomitant]
     Active Substance: IBRUTINIB
     Dosage: 140 MG, UNK
  7. ANORO ELLIPTA [Suspect]
     Active Substance: UMECLIDINIUM BROMIDE\VILANTEROL TRIFENATATE
     Indication: BRONCHITIS
     Dosage: 1 PUFF(S), QD
     Route: 055
     Dates: start: 201601
  8. METOPROLOL. [Concomitant]
     Active Substance: METOPROLOL
  9. ATORVASTATIN [Concomitant]
     Active Substance: ATORVASTATIN
  10. ALBUTEROL + IPRATROPIUM [Concomitant]
  11. LORATADINE. [Concomitant]
     Active Substance: LORATADINE

REACTIONS (4)
  - Choking [Not Recovered/Not Resolved]
  - Dyspnoea [Unknown]
  - Device use error [Recovering/Resolving]
  - Off label use [Unknown]

NARRATIVE: CASE EVENT DATE: 201601
